FAERS Safety Report 8098369-2 (Version None)
Quarter: 2012Q1

REPORT INFORMATION
  Report Type: 
  Country: None (occurrence: None)
  Receive Date: 20120131
  Receipt Date: 20120124
  Transmission Date: 20120608
  Serious: No
  Sender: FDA-Public Use
  Company Number: GB-ABBOTT-11P-167-0876753-00

PATIENT
  Sex: Female
  Weight: 69.1 kg

DRUGS (3)
  1. LEFLUNOMIDE [Concomitant]
     Indication: PSORIATIC ARTHROPATHY
     Dosage: OD
     Route: 048
     Dates: start: 20100501
  2. IBUPROFEN [Concomitant]
     Indication: ANALGESIC THERAPY
     Dosage: ON
     Route: 048
  3. HUMIRA [Suspect]
     Indication: PRODUCT USED FOR UNKNOWN INDICATION
     Route: 058
     Dates: start: 20110301, end: 20111201

REACTIONS (8)
  - SEASONAL ALLERGY [None]
  - URTICARIA [None]
  - DRUG HYPERSENSITIVITY [None]
  - ECZEMA [None]
  - RASH [None]
  - INJECTION SITE RASH [None]
  - LIP SWELLING [None]
  - EYE SWELLING [None]
